FAERS Safety Report 6398699-6 (Version None)
Quarter: 2009Q4

REPORT INFORMATION
  Report Type: 
  Country: None (occurrence: None)
  Receive Date: 20091013
  Receipt Date: 20091001
  Transmission Date: 20100525
  Serious: No
  Sender: FDA-Public Use
  Company Number: AR-ELI_LILLY_AND_COMPANY-AR200910000673

PATIENT
  Age: 49 Year
  Sex: Female

DRUGS (7)
  1. MIDAX [Suspect]
     Indication: SCHIZOPHRENIA
     Dosage: 15 MG, DAILY (1/D)
     Route: 048
  2. MIDAX [Suspect]
     Dosage: 10 MG, DAILY (1/D)
     Route: 048
  3. CARBAMAZEPINE [Concomitant]
     Dosage: 800 MG, UNKNOWN
     Route: 065
  4. BIPERIDEN HYDROCHLORIDE TAB [Concomitant]
     Dosage: UNK, DAILY (1/D)
     Route: 065
  5. PAROXETINE [Concomitant]
     Dosage: 20 MG, UNKNOWN
     Route: 065
  6. LEVOMEPROMAZINE [Concomitant]
     Dosage: UNK, DAILY (1/D)
     Route: 065
  7. LEVOTHYROXINE [Concomitant]
     Dosage: 150 UG, UNKNOWN
     Route: 065

REACTIONS (4)
  - ANAEMIA [None]
  - CONSTIPATION [None]
  - INTENTIONAL DRUG MISUSE [None]
  - WEIGHT DECREASED [None]
